FAERS Safety Report 4530304-3 (Version None)
Quarter: 2004Q4

REPORT INFORMATION
  Report Type: 
  Country: None (occurrence: None)
  Receive Date: 20041217
  Receipt Date: 20000721
  Transmission Date: 20050328
  Serious: Yes (Death)
  Sender: FDA-Public Use
  Company Number: US-ROCHE-241581

PATIENT
  Age: 17 Year
  Sex: Male
  Weight: 77.1 kg

DRUGS (2)
  1. ACCUTANE [Suspect]
     Route: 048
     Dates: start: 19991207, end: 20000513
  2. TYLENOL (CAPLET) [Concomitant]
     Dosage: PRN ONLY.  DRUG STATED AS OTC TYLENOL
     Route: 048

REACTIONS (7)
  - ARTHRALGIA [None]
  - BACK PAIN [None]
  - BLOOD TRIGLYCERIDES INCREASED [None]
  - CHEILITIS [None]
  - COMPLETED SUICIDE [None]
  - MENTAL DISORDER [None]
  - NERVOUS SYSTEM DISORDER [None]
